FAERS Safety Report 10216535 (Version 1)
Quarter: 2014Q2

REPORT INFORMATION
  Report Type: Spontaneous
  Country: BR (occurrence: BR)
  Receive Date: 20140604
  Receipt Date: 20140604
  Transmission Date: 20141212
  Serious: Yes (Other)
  Sender: FDA-Public Use
  Company Number: BR-PFIZER INC-2014143652

PATIENT
  Age: 74 Year
  Sex: Female
  Weight: 72 kg

DRUGS (9)
  1. FELDENE [Suspect]
     Indication: BONE PAIN
     Dosage: UNK
     Route: 042
     Dates: end: 201404
  2. FELDENE [Suspect]
     Indication: BACK PAIN
  3. TRAMAL [Suspect]
     Indication: BONE PAIN
     Dosage: UNK
     Dates: end: 201404
  4. TRAMAL [Suspect]
     Indication: BACK PAIN
  5. NORVASC [Suspect]
     Indication: HYPERTENSION
     Dosage: UNK
     Dates: start: 2001, end: 2012
  6. CALCIUM CARBONATE/CALCIUM CITRATE/CALCIUM PHOSPHATE/CHOLECALCIFEROL/VITAMIN D [Suspect]
     Indication: VITAMIN D DEFICIENCY
     Dosage: UNK
     Route: 048
     Dates: start: 2014, end: 2014
  7. NEXIUM [Suspect]
     Indication: GASTRITIS
     Dosage: 40 MG, UNK
     Route: 048
     Dates: start: 2010
  8. NEXIUM [Suspect]
     Indication: METAPLASIA
  9. LEXOTAN [Concomitant]
     Dosage: 3 MG, UNK
     Route: 048
     Dates: start: 2012

REACTIONS (14)
  - Tachycardia [Not Recovered/Not Resolved]
  - Blood pressure fluctuation [Recovering/Resolving]
  - Bone pain [Not Recovered/Not Resolved]
  - Back pain [Not Recovered/Not Resolved]
  - Condition aggravated [Not Recovered/Not Resolved]
  - Helicobacter infection [Unknown]
  - Abdominal pain upper [Unknown]
  - Vitamin D deficiency [Not Recovered/Not Resolved]
  - Malaise [Not Recovered/Not Resolved]
  - Flatulence [Not Recovered/Not Resolved]
  - Weight decreased [Recovering/Resolving]
  - Blood glucose increased [Not Recovered/Not Resolved]
  - Gastritis [Unknown]
  - Metaplasia [Unknown]
